FAERS Safety Report 6074397-3 (Version None)
Quarter: 2009Q1

REPORT INFORMATION
  Report Type: 
  Country: None (occurrence: None)
  Receive Date: 20090206
  Receipt Date: 20090130
  Transmission Date: 20090719
  Serious: Yes (Hospitalization)
  Sender: FDA-Public Use
  Company Number: DSA_33162_2009

PATIENT
  Age: 84 Year
  Sex: Female

DRUGS (6)
  1. ENALAPRIL MALEATE AND HYDROCHLOROTHIAZIDE [Suspect]
     Indication: HYPERTENSION
     Dosage: (20-12.5 MG/DAILY ORAL)
     Route: 048
  2. AMOXICILLIN W/CLAVULANATE POTASSIUM (POWD AMOXICILLIN/CLAVULANATE POTA [Suspect]
     Indication: DIARRHOEA
     Dosage: (500-125 MG (FREQUENCY UNKNOWN) ORAL)
     Route: 048
     Dates: start: 20080714, end: 20080717
  3. IBUPROFEN [Suspect]
     Indication: PAIN
     Dosage: (600 MG QD ORAL)
     Route: 048
     Dates: start: 20080401
  4. PREGABALIN (CAP PREGABALIN) [Suspect]
     Indication: DRUG USE FOR UNKNOWN INDICATION
     Dosage: (DF ORAL)
     Route: 048
     Dates: start: 20080101
  5. AMLODIPINE BESYLATE [Concomitant]
  6. RASAGILINE MESYLATE [Concomitant]

REACTIONS (4)
  - DIARRHOEA [None]
  - DRUG INTERACTION [None]
  - PAIN [None]
  - RENAL FAILURE CHRONIC [None]
